FAERS Safety Report 8512626-4 (Version None)
Quarter: 2012Q3

REPORT INFORMATION
  Report Type: 
  Country: None (occurrence: None)
  Receive Date: 20120716
  Receipt Date: 20120705
  Transmission Date: 20120928
  Serious: Yes (Other)
  Sender: FDA-Public Use
  Company Number: US-BRISTOL-MYERS SQUIBB COMPANY-16743536

PATIENT
  Age: 71 Year
  Sex: Male
  Weight: 79 kg

DRUGS (7)
  1. ZOCOR [Concomitant]
  2. ONGLYZA [Suspect]
     Indication: TYPE 2 DIABETES MELLITUS
     Dosage: PRESCRIPTION#: 6296879,INTRP + RESTR AND FINALLY LAST WEEK WITHDRAWN
  3. ASPIRIN [Concomitant]
  4. DIGOXIN [Concomitant]
     Dosage: DIGOXIN 0.25MG 2 DAYS PER WEEK
  5. METFORMIN HCL [Concomitant]
     Indication: TYPE 2 DIABETES MELLITUS
     Dosage: CURRENTLY TAKING 2550MG PER DAY
  6. VERAPAMIL [Concomitant]
  7. SINGULAIR [Concomitant]

REACTIONS (5)
  - FATIGUE [None]
  - BLOOD GLUCOSE INCREASED [None]
  - CONSTIPATION [None]
  - EYE SWELLING [None]
  - MUSCULOSKELETAL CHEST PAIN [None]
